FAERS Safety Report 6869647-7 (Version None)
Quarter: 2010Q3

REPORT INFORMATION
  Report Type: 
  Country: None (occurrence: None)
  Receive Date: 20100722
  Receipt Date: 20080812
  Transmission Date: 20110219
  Serious: No
  Sender: FDA-Public Use
  Company Number: US-PFIZER INC-2008067846

PATIENT
  Sex: Male

DRUGS (6)
  1. CHANTIX [Suspect]
     Dates: start: 20080812, end: 20080812
  2. DEPAKOTE [Concomitant]
     Indication: CONVULSION
  3. FELBATOL [Concomitant]
     Indication: CONVULSION
  4. KEPPRA [Concomitant]
     Indication: CONVULSION
  5. FLORINEF [Concomitant]
     Indication: HYPERADRENALISM
  6. PREDNISOLONE [Concomitant]
     Indication: HYPERADRENALISM

REACTIONS (1)
  - WRONG DRUG ADMINISTERED [None]
